FAERS Safety Report 26152569 (Version 1)
Quarter: 2025Q4

REPORT INFORMATION
  Report Type: Spontaneous
  Country: JP (occurrence: JP)
  Receive Date: 20251214
  Receipt Date: 20251214
  Transmission Date: 20260118
  Serious: Yes (Life-Threatening, Hospitalization, Other)
  Sender: AMGEN
  Company Number: JP-TANABE_PHARMA-MTPC2025-0021896

PATIENT
  Age: 74 Year
  Sex: Female

DRUGS (4)
  1. UPLIZNA [Suspect]
     Active Substance: INEBILIZUMAB-CDON
     Indication: Neuromyelitis optica spectrum disorder
     Dosage: 300 MILLIGRAM, QD
     Route: 040
     Dates: start: 20250221
  2. PREDONINE [Suspect]
     Active Substance: PREDNISOLONE
     Indication: Neuromyelitis optica spectrum disorder
     Dosage: 7.5 MILLIGRAM
     Route: 048
  3. PREDONINE [Suspect]
     Active Substance: PREDNISOLONE
     Dosage: 6 MILLIGRAM, QD
     Route: 048
  4. AZATHIOPRINE [Concomitant]
     Active Substance: AZATHIOPRINE
     Dosage: 20 MILLIGRAM
     Route: 065

REACTIONS (1)
  - Sepsis [Not Recovered/Not Resolved]

NARRATIVE: CASE EVENT DATE: 20251205
